FAERS Safety Report 22345337 (Version 3)
Quarter: 2023Q4

REPORT INFORMATION
  Report Type: Spontaneous
  Country: US (occurrence: US)
  Receive Date: 20230519
  Receipt Date: 20231222
  Transmission Date: 20240110
  Serious: Yes (Other)
  Sender: FDA-Public Use
  Company Number: US-TEVA-2023-US-2888726

PATIENT

DRUGS (1)
  1. HYDROXYZINE [Suspect]
     Active Substance: HYDROXYZINE HYDROCHLORIDE
     Indication: Panic attack
     Route: 060
     Dates: start: 20210923

REACTIONS (9)
  - Burn oral cavity [Unknown]
  - Drug ineffective [Unknown]
  - Product use in unapproved indication [Unknown]
  - Incorrect route of product administration [Unknown]
  - Burns second degree [Unknown]
  - Chemical burn [Not Recovered/Not Resolved]
  - Tooth injury [Unknown]
  - Ulcer [Not Recovered/Not Resolved]
  - Dental caries [Unknown]
